FAERS Safety Report 24553914 (Version 1)
Quarter: 2024Q4

REPORT INFORMATION
  Report Type: Report from Study
  Country: US (occurrence: US)
  Receive Date: 20241028
  Receipt Date: 20241028
  Transmission Date: 20250115
  Serious: No
  Sender: ROCHE
  Company Number: US-ROCHE-10000083563

PATIENT
  Age: 13 Year
  Sex: Male
  Weight: 55.79 kg

DRUGS (3)
  1. NUTROPIN AQ [Suspect]
     Active Substance: SOMATROPIN
     Indication: Hypopituitarism
     Dosage: MORE DOSAGE INFORMATION IS 20 MG AUTO PEN
     Route: 065
     Dates: end: 20250913
  2. NUTROPIN AQ [Suspect]
     Active Substance: SOMATROPIN
     Indication: Growth hormone deficiency
     Dosage: ALTERNATING EVERY OTHER EVENING WITH 2.6 DOSING, ABOUT 30 MINUTES BEFORE BEDTIME
     Route: 058
  3. NUTROPIN AQ [Suspect]
     Active Substance: SOMATROPIN
     Dosage: ALTERNATING EVERY OTHER EVENING WITH 2.4 DOSING, ABOUT 30 MINUTES BEFORE BEDTIME
     Route: 058

REACTIONS (3)
  - Off label use [Unknown]
  - Mood swings [Unknown]
  - Intercepted product storage error [Unknown]
